FAERS Safety Report 4910585-4 (Version None)
Quarter: 2006Q1

REPORT INFORMATION
  Report Type: 
  Country: None (occurrence: None)
  Receive Date: 20060208
  Receipt Date: 20060208
  Transmission Date: 20060701
  Serious: Yes (Death)
  Sender: FDA-Public Use
  Company Number: None

PATIENT
  Sex: Male

DRUGS (1)
  1. SEROQUEL [Suspect]
     Indication: DEMENTIA

REACTIONS (5)
  - ABDOMINAL DISTENSION [None]
  - CONVULSION [None]
  - JOINT STIFFNESS [None]
  - OVERDOSE [None]
  - PYREXIA [None]
